FAERS Safety Report 13495109 (Version 2)
Quarter: 2017Q2

REPORT INFORMATION
  Report Type: Report from Study
  Country: ES (occurrence: ES)
  Receive Date: 20170428
  Receipt Date: 20170428
  Transmission Date: 20170830
  Serious: Yes (Life-Threatening, Hospitalization)
  Sender: FDA-Public Use
  Company Number: ES-009507513-1704ESP010020

PATIENT
  Age: 75 Year
  Sex: Male
  Weight: 69.8 kg

DRUGS (4)
  1. ATROVENT [Concomitant]
     Active Substance: IPRATROPIUM BROMIDE
     Indication: DYSPNOEA
     Dosage: TOTAL DAILY DOSE 1 SPRAY, PRN; FORMUALTION: INHALANT
     Route: 055
     Dates: start: 20161028
  2. PEMBROLIZUMAB. [Suspect]
     Active Substance: PEMBROLIZUMAB
     Dosage: 200 MG, Q3W
     Route: 042
     Dates: start: 20170327, end: 20170327
  3. PEMBROLIZUMAB. [Suspect]
     Active Substance: PEMBROLIZUMAB
     Indication: COLORECTAL CANCER
     Dosage: 200 MG, Q3W
     Route: 042
     Dates: start: 20160921, end: 20170306
  4. ALBUTEROL. [Concomitant]
     Active Substance: ALBUTEROL
     Indication: DYSPNOEA
     Dosage: TOTAL DAILY DOSE 1 SPRAY, PRN; FORMULATION: INHALANT
     Route: 055
     Dates: start: 20161028

REACTIONS (2)
  - Hyponatraemia [Not Recovered/Not Resolved]
  - Adrenal insufficiency [Not Recovered/Not Resolved]

NARRATIVE: CASE EVENT DATE: 20170418
